FAERS Safety Report 18805723 (Version 1)
Quarter: 2021Q1

REPORT INFORMATION
  Report Type: Spontaneous
  Country: US (occurrence: US)
  Receive Date: 20210129
  Receipt Date: 20210129
  Transmission Date: 20210419
  Serious: Yes (Other)
  Sender: FDA-Public Use
  Company Number: US-CIPLA LTD.-2021US00644

PATIENT

DRUGS (2)
  1. GABAPENTIN. [Suspect]
     Active Substance: GABAPENTIN
     Indication: PRODUCT USED FOR UNKNOWN INDICATION
     Dosage: UNK
     Route: 065
  2. DELTA(9)?TETRAHYDROCANNABINOLIC ACID [Suspect]
     Active Substance: DELTA(9)-TETRAHYDROCANNABINOLIC ACID
     Dosage: UNK
     Route: 065

REACTIONS (2)
  - Drug abuse [Unknown]
  - Toxicity to various agents [Unknown]
